FAERS Safety Report 20358908 (Version 1)
Quarter: 2022Q1

REPORT INFORMATION
  Report Type: Spontaneous
  Country: US (occurrence: None)
  Receive Date: 20220109
  Receipt Date: 20220109
  Transmission Date: 20220423
  Serious: Yes (Other)
  Sender: FDA-Public Use
  Company Number: None

PATIENT
  Age: 26 Year
  Sex: Male

DRUGS (1)
  1. SALICYLIC ACID [Suspect]
     Active Substance: SALICYLIC ACID
     Indication: Skin discolouration
     Route: 062

REACTIONS (4)
  - Product use in unapproved indication [None]
  - Product label issue [None]
  - Product label issue [None]
  - Product advertising issue [None]

NARRATIVE: CASE EVENT DATE: 20211126
